FAERS Safety Report 10021247 (Version 2)
Quarter: 2014Q2

REPORT INFORMATION
  Report Type: Spontaneous
  Country: US (occurrence: US)
  Receive Date: 20140319
  Receipt Date: 20140515
  Transmission Date: 20141212
  Serious: Yes (Other)
  Sender: FDA-Public Use
  Company Number: US-PFIZER INC-2013256166

PATIENT
  Age: 56 Year
  Sex: Female
  Weight: 57.14 kg

DRUGS (17)
  1. ALPRAZOLAM [Suspect]
     Indication: NERVOUS SYSTEM DISORDER
     Dosage: 1 MG, 3X/DAY
     Route: 048
     Dates: start: 201308
  2. ALPRAZOLAM [Suspect]
     Indication: MUSCULOSKELETAL DISORDER
     Dosage: UNK
     Route: 048
  3. ALPRAZOLAM [Suspect]
     Indication: NERVE INJURY
  4. ALPRAZOLAM [Suspect]
     Indication: MUSCLE SPASMS
  5. ALPRAZOLAM [Suspect]
     Indication: ANXIETY
  6. ALPRAZOLAM [Suspect]
     Indication: NERVOUS SYSTEM DISORDER
     Dosage: UNK
  7. ALPRAZOLAM [Suspect]
     Indication: MUSCULOSKELETAL DISORDER
  8. ALPRAZOLAM [Suspect]
     Indication: NERVE INJURY
  9. ALPRAZOLAM [Suspect]
     Indication: MUSCLE SPASMS
  10. ALPRAZOLAM [Suspect]
     Indication: ANXIETY
  11. ALPRAZOLAM [Suspect]
     Indication: NERVOUS SYSTEM DISORDER
     Dosage: UNK
  12. ALPRAZOLAM [Suspect]
     Indication: MUSCULOSKELETAL DISORDER
  13. ALPRAZOLAM [Suspect]
     Indication: NERVE INJURY
  14. ALPRAZOLAM [Suspect]
     Indication: MUSCLE SPASMS
  15. ALPRAZOLAM [Suspect]
     Indication: ANXIETY
  16. FENTANYL [Concomitant]
     Dosage: UNK
  17. HYDROCODONE [Concomitant]
     Dosage: UNK

REACTIONS (2)
  - Road traffic accident [Unknown]
  - Drug ineffective for unapproved indication [Unknown]
